FAERS Safety Report 9356024 (Version 2)
Quarter: 2013Q3

REPORT INFORMATION
  Report Type: Spontaneous
  Country: FR (occurrence: FR)
  Receive Date: 20130619
  Receipt Date: 20130730
  Transmission Date: 20140515
  Serious: Yes (Hospitalization)
  Sender: FDA-Public Use
  Company Number: FR-ELI_LILLY_AND_COMPANY-FR201306004423

PATIENT
  Age: 74 Year
  Sex: Female

DRUGS (5)
  1. TERIPARATIDE [Suspect]
     Indication: OSTEOPOROTIC FRACTURE
     Dosage: 20 UG, QD
     Route: 058
     Dates: start: 20130425
  2. CORDARONE [Concomitant]
  3. LASILIX [Concomitant]
  4. ALDACTONE [Concomitant]
  5. PREVISCAN [Concomitant]

REACTIONS (4)
  - Fall [Recovered/Resolved with Sequelae]
  - Pelvic fracture [Recovered/Resolved with Sequelae]
  - Laceration [Not Recovered/Not Resolved]
  - Pain [Not Recovered/Not Resolved]
